FAERS Safety Report 10027443 (Version 2)
Quarter: 2014Q2

REPORT INFORMATION
  Report Type: Spontaneous
  Country: US (occurrence: US)
  Receive Date: 20140321
  Receipt Date: 20140404
  Transmission Date: 20141212
  Serious: No
  Sender: FDA-Public Use
  Company Number: US-PFIZER INC-2014082248

PATIENT
  Age: 46 Year
  Sex: Female

DRUGS (9)
  1. GEODON [Suspect]
     Dosage: UNK
  2. METFORMIN HCL [Suspect]
     Dosage: UNK
  3. CODEINE [Suspect]
     Dosage: UNK
  4. ASA [Suspect]
     Dosage: UNK
  5. HYDROCODONE [Suspect]
     Dosage: UNK
  6. CECLOR [Suspect]
     Dosage: UNK
  7. ABILIFY [Suspect]
     Dosage: UNK
  8. NOVOLIN R [Suspect]
     Dosage: UNK
  9. ACTOS [Suspect]
     Dosage: UNK

REACTIONS (1)
  - Drug hypersensitivity [Unknown]
